FAERS Safety Report 24818316 (Version 1)
Quarter: 2025Q1

REPORT INFORMATION
  Report Type: Spontaneous
  Country: US (occurrence: US)
  Receive Date: 20250108
  Receipt Date: 20250108
  Transmission Date: 20250408
  Serious: No
  Sender: Haleon PLC
  Company Number: US-HALEON-2220816

PATIENT
  Age: 76 Year
  Sex: Female

DRUGS (3)
  1. SENSODYNE CLINICAL WHITE STAIN PROTECTOR [Suspect]
     Active Substance: POTASSIUM NITRATE\SODIUM FLUORIDE
     Indication: Hyperaesthesia teeth
  2. SENSODYNE SENSITIVITY AND GUM MINT [Suspect]
     Active Substance: STANNOUS FLUORIDE
     Indication: Hyperaesthesia teeth
  3. SENSODYNE COMPLETE PROTECTION EXTRA FRESH [Suspect]
     Active Substance: STANNOUS FLUORIDE
     Indication: Hyperaesthesia teeth

REACTIONS (4)
  - Oral discomfort [Not Recovered/Not Resolved]
  - Tongue discomfort [Not Recovered/Not Resolved]
  - Drug ineffective [Unknown]
  - Condition aggravated [Not Recovered/Not Resolved]
